FAERS Safety Report 5528104-0 (Version None)
Quarter: 2007Q4

REPORT INFORMATION
  Report Type: 
  Country: None (occurrence: None)
  Receive Date: 20071128
  Receipt Date: 20071114
  Transmission Date: 20080405
  Serious: Yes (Life-Threatening)
  Sender: FDA-Public Use
  Company Number: CH-RANBAXY-2007RR-11504

PATIENT

DRUGS (9)
  1. ENALAPRIL MALEATE TABLETS 10MG [Suspect]
     Dosage: 10 MG, QD
  2. ENALAPRIL MALEATE TABLETS 10MG [Suspect]
     Dosage: 5 MG, QD
  3. DIGOXIN [Concomitant]
  4. AMIODARONE HCL [Concomitant]
  5. ISOSORBIDE DINITRATE [Concomitant]
  6. DIHYDRALAZINE [Concomitant]
  7. SPIRONOLACTONE [Concomitant]
  8. TIORIDAZINE [Concomitant]
  9. HALOPERIDOL [Concomitant]

REACTIONS (1)
  - ELECTROLYTE IMBALANCE [None]
